FAERS Safety Report 15440111 (Version 1)
Quarter: 2018Q3

REPORT INFORMATION
  Report Type: Spontaneous
  Country: US (occurrence: US)
  Receive Date: 20180925
  Receipt Date: 20180925
  Transmission Date: 20181010
  Serious: Yes (Life-Threatening)
  Sender: FDA-Public Use
  Company Number: None

PATIENT
  Age: 57 Year
  Sex: Female
  Weight: 51 kg

DRUGS (15)
  1. NOREPINEPHRINE INFUSION [Concomitant]
     Dates: start: 20180919
  2. DEXMEDETOMIDINE. [Concomitant]
     Active Substance: DEXMEDETOMIDINE
     Dates: start: 20180922
  3. GABAPENTIN. [Concomitant]
     Active Substance: GABAPENTIN
     Dates: start: 20180921
  4. ALBUTEIN [Suspect]
     Active Substance: ALBUMIN HUMAN
     Indication: PROCEDURAL HYPOTENSION
     Route: 040
     Dates: start: 20180922
  5. MEROPENEM. [Concomitant]
     Active Substance: MEROPENEM
     Dates: start: 20180920, end: 20180924
  6. VANCOMYCIN IV [Concomitant]
     Active Substance: VANCOMYCIN HYDROCHLORIDE
     Dates: start: 20180922
  7. FENTANYL INFUSION [Concomitant]
     Active Substance: FENTANYL
     Dates: start: 20180920
  8. METHADONE PO [Concomitant]
     Dates: start: 20180921
  9. EPINEPHRINE INFUSION [Concomitant]
     Active Substance: EPINEPHRINE
     Dates: start: 20180923
  10. LORAZEPAM PO [Concomitant]
     Dates: start: 20180922
  11. MICAFUNGIN [Concomitant]
     Active Substance: MICAFUNGIN
     Dates: start: 20180919
  12. PROPOFOL INFUSION [Concomitant]
     Active Substance: PROPOFOL
     Dates: start: 20180921
  13. VASOPRESSIN INFUSION [Concomitant]
     Dates: start: 20180923
  14. ENOXAPARIN [Concomitant]
     Active Substance: ENOXAPARIN
     Dates: start: 20180919
  15. MIDAZOLAM [Concomitant]
     Active Substance: MIDAZOLAM HYDROCHLORIDE
     Dates: start: 20180919

REACTIONS (2)
  - Hypotension [None]
  - Urticaria [None]

NARRATIVE: CASE EVENT DATE: 20180923
